FAERS Safety Report 8014348-5 (Version None)
Quarter: 2011Q4

REPORT INFORMATION
  Report Type: 
  Country: None (occurrence: None)
  Receive Date: 20111229
  Receipt Date: 20111214
  Transmission Date: 20120403
  Serious: Yes (Disabling, Other)
  Sender: FDA-Public Use
  Company Number: BR-BIOMARINP-000262

PATIENT
  Sex: Male
  Weight: 14.6 kg

DRUGS (5)
  1. NAGLAZYME [Suspect]
     Indication: MUCOPOLYSACCHARIDOSIS VI
     Route: 037
     Dates: start: 20070316, end: 20070622
  2. NAGLAZYME [Suspect]
     Route: 041
     Dates: start: 20080101, end: 20080320
  3. NAGLAZYME [Suspect]
     Route: 037
     Dates: start: 20081201
  4. NAGLAZYME [Suspect]
     Route: 041
     Dates: start: 20071008, end: 20071201
  5. NAGLAZYME [Suspect]
     Dosage: FREQUENCY: X1
     Route: 037
     Dates: start: 20071122, end: 20071122

REACTIONS (12)
  - MUSCULAR WEAKNESS [None]
  - HYPOTONIA [None]
  - GAIT DISTURBANCE [None]
  - MUSCLE SPASTICITY [None]
  - HYPOKINESIA [None]
  - ATLANTOAXIAL INSTABILITY [None]
  - OXYGEN SATURATION DECREASED [None]
  - PYRAMIDAL TRACT SYNDROME [None]
  - SLEEP APNOEA SYNDROME [None]
  - BRONCHOSPASM [None]
  - SPINAL CORD COMPRESSION [None]
  - BLADDER DISORDER [None]
